FAERS Safety Report 16862197 (Version 1)
Quarter: 2019Q3

REPORT INFORMATION
  Report Type: Spontaneous
  Country: US (occurrence: US)
  Receive Date: 20190927
  Receipt Date: 20190927
  Transmission Date: 20191005
  Serious: No
  Sender: FDA-Public Use
  Company Number: US-CELGENEUS-USA-20190907070

PATIENT
  Age: 64 Year
  Sex: Female

DRUGS (2)
  1. OTEZLA [Suspect]
     Active Substance: APREMILAST
     Indication: PSORIATIC ARTHROPATHY
     Dosage: 60 MILLIGRAM
     Route: 048
     Dates: start: 201909
  2. OTEZLA [Suspect]
     Active Substance: APREMILAST
     Indication: PSORIASIS
     Dosage: 60 MILLIGRAM
     Route: 048
     Dates: start: 20190703, end: 201909

REACTIONS (11)
  - Sinus disorder [Unknown]
  - Middle insomnia [Unknown]
  - Frequent bowel movements [Unknown]
  - Fatigue [Unknown]
  - Food intolerance [Unknown]
  - Dyspepsia [Unknown]
  - Therapeutic response decreased [Unknown]
  - Nausea [Unknown]
  - Headache [Unknown]
  - Depression [Unknown]
  - Diarrhoea [Unknown]

NARRATIVE: CASE EVENT DATE: 201907
